FAERS Safety Report 5058013-5 (Version None)
Quarter: 2006Q3

REPORT INFORMATION
  Report Type: 
  Country: None (occurrence: None)
  Receive Date: 20060721
  Receipt Date: 20060512
  Transmission Date: 20061208
  Serious: No
  Sender: FDA-Public Use
  Company Number: US-GLAXOSMITHKLINE-A0605402A

PATIENT
  Age: 49 Year
  Sex: Male

DRUGS (5)
  1. AVANDIA [Suspect]
     Dosage: 8MG PER DAY
     Route: 048
     Dates: start: 20060101
  2. AVAPRO [Concomitant]
  3. GEMFIBROZIL [Concomitant]
  4. GLIMEPIRIDE [Concomitant]
  5. GLIBOMET [Concomitant]

REACTIONS (1)
  - POLLAKIURIA [None]
